FAERS Safety Report 6793960-5 (Version None)
Quarter: 2010Q2

REPORT INFORMATION
  Report Type: 
  Country: None (occurrence: None)
  Receive Date: 20100624
  Receipt Date: 20060809
  Transmission Date: 20101027
  Serious: Yes (Hospitalization, Other)
  Sender: FDA-Public Use
  Company Number: US-PFIZER INC-23100359

PATIENT
  Sex: Female

DRUGS (4)
  1. ARGATROBAN [Suspect]
     Route: 042
     Dates: start: 20060807
  2. DIGOXIN [Concomitant]
  3. FAMOTIDINE [Concomitant]
  4. METOPROLOL [Concomitant]

REACTIONS (1)
  - COAGULATION TIME PROLONGED [None]
